FAERS Safety Report 13274516 (Version 2)
Quarter: 2017Q1

REPORT INFORMATION
  Report Type: Report from Study
  Country: DE (occurrence: DE)
  Receive Date: 20170227
  Receipt Date: 20170323
  Transmission Date: 20170428
  Serious: Yes (Hospitalization)
  Sender: FDA-Public Use
  Company Number: DE-SEATTLE GENETICS-2017SGN00356

PATIENT

DRUGS (14)
  1. FRAGMIN [Concomitant]
     Active Substance: DALTEPARIN SODIUM
     Dosage: UNK
     Route: 065
     Dates: start: 201703, end: 20170314
  2. BRENTUXIMAB VEDOTIN [Suspect]
     Active Substance: BRENTUXIMAB VEDOTIN
     Indication: HODGKIN^S DISEASE
     Dosage: 1.8 MG/KG, UNK
     Route: 065
     Dates: start: 20170208, end: 20170301
  3. ACIC                               /00587301/ [Concomitant]
     Dosage: 800 MG, UNK
     Route: 065
     Dates: start: 201611, end: 20170314
  4. ETOPOSIDE. [Suspect]
     Active Substance: ETOPOSIDE
     Indication: HODGKIN^S DISEASE
     Dosage: 100 MG/M2, UNK
     Route: 065
     Dates: start: 20170209, end: 20170304
  5. DACARBAZINE. [Suspect]
     Active Substance: DACARBAZINE
     Indication: HODGKIN^S DISEASE
     Dosage: 250 MG/M2, UNK
     Route: 065
     Dates: start: 20170210, end: 20170304
  6. AMOXICILLIN AND CLAVULANATE POTASSIUM [Concomitant]
     Active Substance: AMOXICILLIN\CLAVULANATE POTASSIUM
     Dosage: 3000 MG, UNK
     Route: 065
     Dates: start: 20170220, end: 20170220
  7. AMPHO-MORONAL [Concomitant]
     Active Substance: AMPHOTERICIN B
     Dosage: 400 MG, UNK
     Route: 065
     Dates: start: 201611, end: 20170220
  8. DOXORUBICIN [Suspect]
     Active Substance: DOXORUBICIN
     Indication: HODGKIN^S DISEASE
     Dosage: 35 MG/M2, UNK
     Route: 065
     Dates: start: 20170209, end: 20170209
  9. ACIC                               /00587301/ [Concomitant]
     Dosage: 800 MG, UNK
     Route: 065
     Dates: start: 201611, end: 20170220
  10. ACETYLSALICYLIC ACID [Concomitant]
     Active Substance: ASPIRIN
     Dosage: 50 MG, UNK
     Route: 065
     Dates: start: 201703, end: 20170314
  11. BRENTUXIMAB VEDOTIN [Suspect]
     Active Substance: BRENTUXIMAB VEDOTIN
     Indication: HODGKIN^S DISEASE
  12. CYCLOPHOSPHAMIDE. [Suspect]
     Active Substance: CYCLOPHOSPHAMIDE
     Indication: HODGKIN^S DISEASE
     Dosage: 650 MG/M2, UNK
     Route: 065
     Dates: start: 20170209, end: 20170302
  13. DEXAMETHASONE. [Suspect]
     Active Substance: DEXAMETHASONE
     Indication: HODGKIN^S DISEASE
     Dosage: 40 MG, UNK
     Route: 048
     Dates: start: 20170209, end: 20170305
  14. AMPHO-MORONAL [Concomitant]
     Active Substance: AMPHOTERICIN B
     Dosage: 400 MG, UNK
     Route: 065
     Dates: start: 201611, end: 20170314

REACTIONS (2)
  - Influenza like illness [Recovered/Resolved]
  - Febrile infection [Unknown]

NARRATIVE: CASE EVENT DATE: 20170220
